FAERS Safety Report 6774125-X (Version None)
Quarter: 2010Q2

REPORT INFORMATION
  Report Type: 
  Country: None (occurrence: None)
  Receive Date: 20100617
  Receipt Date: 20100604
  Transmission Date: 20101027
  Serious: Yes (Other)
  Sender: FDA-Public Use
  Company Number: US-JNJFOC-20100604561

PATIENT

DRUGS (1)
  1. MEBENDAZOLE [Suspect]
     Indication: ECHINOCOCCIASIS
     Route: 048

REACTIONS (3)
  - DRUG LEVEL INCREASED [None]
  - DRUG TOXICITY [None]
  - NEUTROPENIA [None]
